FAERS Safety Report 5971205-3 (Version None)
Quarter: 2008Q4

REPORT INFORMATION
  Report Type: 
  Country: None (occurrence: None)
  Receive Date: 20081128
  Receipt Date: 20081117
  Transmission Date: 20090506
  Serious: Yes (Other)
  Sender: FDA-Public Use
  Company Number: BR-JNJFOC-20081104026

PATIENT
  Sex: Female
  Weight: 60 kg

DRUGS (3)
  1. ACETAMINOPHEN W/ CODEINE [Suspect]
     Indication: PAIN IN EXTREMITY
     Dosage: ACETAMINOPHEN 500 MG AND CODEINE PHOSPHATE 30 MG
     Route: 048
  2. ATENOLOL [Concomitant]
     Dosage: SINCE 4 OR 5 YEARS AGO
     Route: 065
  3. LIBIAM [Concomitant]
     Indication: MENOPAUSE
     Dosage: SINCE A LONG TIME AGO
     Route: 065

REACTIONS (5)
  - BACK PAIN [None]
  - CHEST PAIN [None]
  - LIVER DISORDER [None]
  - MALAISE [None]
  - PERIPHERAL COLDNESS [None]
